FAERS Safety Report 10519016 (Version 1)
Quarter: 2014Q4

REPORT INFORMATION
  Report Type: Spontaneous
  Country: US (occurrence: None)
  Receive Date: 20141014
  Receipt Date: 20141014
  Transmission Date: 20150528
  Serious: Yes (Hospitalization)
  Sender: FDA-Public Use
  Company Number: None

PATIENT
  Age: 69 Year
  Sex: Male
  Weight: 81.65 kg

DRUGS (3)
  1. ANDROGEL [Suspect]
     Active Substance: TESTOSTERONE
     Indication: ASTHENIA
     Dosage: ONE PACKET, ONCE DAILY, APPLIED TO A SURFACE, USUALLY THE SKIN
     Route: 062
     Dates: start: 2004
  2. ANDROGEL [Suspect]
     Active Substance: TESTOSTERONE
     Indication: BLOOD TESTOSTERONE DECREASED
     Dosage: ONE PACKET, ONCE DAILY, APPLIED TO A SURFACE, USUALLY THE SKIN
     Route: 062
     Dates: start: 2004
  3. ANDROGEL [Suspect]
     Active Substance: TESTOSTERONE
     Indication: ALOPECIA
     Dosage: ONE PACKET, ONCE DAILY, APPLIED TO A SURFACE, USUALLY THE SKIN
     Route: 062
     Dates: start: 2004

REACTIONS (3)
  - Coronary artery bypass [None]
  - Cardiac disorder [None]
  - Stent placement [None]

NARRATIVE: CASE EVENT DATE: 20130329
